FAERS Safety Report 21265692 (Version 1)
Quarter: 2022Q3

REPORT INFORMATION
  Report Type: Spontaneous
  Country: CN (occurrence: CN)
  Receive Date: 20220829
  Receipt Date: 20220829
  Transmission Date: 20221026
  Serious: Yes (Hospitalization)
  Sender: FDA-Public Use
  Company Number: CN-ORGANON-O2208CHN001694

PATIENT
  Age: 56 Year
  Sex: Female
  Weight: 54 kg

DRUGS (5)
  1. DIPROSPAN [Suspect]
     Active Substance: BETAMETHASONE DIPROPIONATE\BETAMETHASONE SODIUM PHOSPHATE
     Indication: Arthritis
     Dosage: 1  VIAL, QW (STRENGTH:5.2 MG/ML)
     Route: 014
     Dates: start: 20220815, end: 20220815
  2. DEXAMETHASONE SODIUM PHOSPHATE [Suspect]
     Active Substance: DEXAMETHASONE SODIUM PHOSPHATE
     Indication: Arthritis
     Dosage: 5UG, QD
     Route: 042
     Dates: start: 20220815, end: 20220815
  3. SODIUM CHLORIDE [Concomitant]
     Active Substance: SODIUM CHLORIDE
     Indication: Vehicle solution use
     Dosage: 100ML, QD
     Route: 042
     Dates: start: 20220815, end: 20220815
  4. SODIUM HYALURONATE [Concomitant]
     Active Substance: HYALURONATE SODIUM
     Indication: Arthritis
     Dosage: 1VIAL, QW
     Route: 014
     Dates: start: 20220815, end: 20220815
  5. LIDOCAINE HYDROCHLORIDE [Concomitant]
     Active Substance: LIDOCAINE HYDROCHLORIDE
     Indication: Arthritis
     Dosage: 1VIAL, QW
     Route: 014
     Dates: start: 20220815, end: 20220815

REACTIONS (2)
  - Hypertension [Recovering/Resolving]
  - Cortisol decreased [Unknown]

NARRATIVE: CASE EVENT DATE: 20220815
